FAERS Safety Report 22656819 (Version 1)
Quarter: 2023Q2

REPORT INFORMATION
  Report Type: Spontaneous
  Country: US (occurrence: US)
  Receive Date: 20230630
  Receipt Date: 20230630
  Transmission Date: 20230722
  Serious: No
  Sender: FDA-Public Use
  Company Number: US-ABBVIE-5309010

PATIENT
  Sex: Female
  Weight: 67.585 kg

DRUGS (2)
  1. LILETTA [Suspect]
     Active Substance: LEVONORGESTREL
     Indication: Contraception
     Dosage: TIME INTERVAL: AS NECESSARY
     Route: 015
     Dates: start: 20230524, end: 20230621
  2. LILETTA [Suspect]
     Active Substance: LEVONORGESTREL
     Indication: Menstrual disorder

REACTIONS (8)
  - Device dislocation [Recovered/Resolved]
  - Product use in unapproved indication [Unknown]
  - Nipple pain [Unknown]
  - Irritability [Unknown]
  - Uterine spasm [Unknown]
  - Breast discomfort [Unknown]
  - Procedural pain [Unknown]
  - Mood altered [Unknown]

NARRATIVE: CASE EVENT DATE: 20230101
